FAERS Safety Report 21484793 (Version 4)
Quarter: 2022Q4

REPORT INFORMATION
  Report Type: Spontaneous
  Country: JP (occurrence: JP)
  Receive Date: 20221020
  Receipt Date: 20221122
  Transmission Date: 20230112
  Serious: Yes (Hospitalization, Other)
  Sender: FDA-Public Use
  Company Number: JP-ONO-2022JP027728

PATIENT
  Age: 59 Year
  Sex: Female
  Weight: 58.4 kg

DRUGS (15)
  1. BRAFTOVI [Suspect]
     Active Substance: ENCORAFENIB
     Indication: Colon cancer
     Dosage: 75 MG, EVERYDAY
     Route: 048
     Dates: start: 20220928, end: 20221011
  2. BRAFTOVI [Suspect]
     Active Substance: ENCORAFENIB
     Dosage: UNK
     Route: 048
     Dates: start: 20221012
  3. MEKTOVI [Suspect]
     Active Substance: BINIMETINIB
     Indication: Colon cancer
     Dosage: 45 MG, Q12H
     Route: 048
     Dates: start: 20220928, end: 20221011
  4. MEKTOVI [Suspect]
     Active Substance: BINIMETINIB
     Dosage: UNK
     Route: 048
     Dates: start: 20221012
  5. ERBITUX [Concomitant]
     Active Substance: CETUXIMAB
     Indication: Colon cancer
     Dosage: 400 MG, QW
     Route: 041
     Dates: start: 20220928
  6. ERBITUX [Concomitant]
     Active Substance: CETUXIMAB
     Dosage: UNK
     Route: 041
     Dates: start: 20221012
  7. VONOPRAZAN FUMARATE [Concomitant]
     Active Substance: VONOPRAZAN FUMARATE
     Indication: Gastric ulcer
     Dosage: 20 MG, EVERYDAY
     Route: 048
     Dates: start: 20220720, end: 20221012
  8. MIYA-BM [Concomitant]
     Active Substance: CLOSTRIDIUM BUTYRICUM SPORES STRAIN M-55
     Indication: Constipation prophylaxis
     Dosage: 1 DF, Q8H
     Route: 048
     Dates: start: 20220323
  9. HEPARINOID [Concomitant]
     Indication: Skin disorder prophylaxis
     Dosage: UNK UNK, PRN (LOTION (EXCEPT LOTION FOR EYE))
     Route: 061
     Dates: start: 20210426
  10. HEPARINOID [Concomitant]
     Indication: Skin disorder prophylaxis
     Dosage: UNK UNK, PRN
     Route: 061
     Dates: start: 20210426
  11. SODIUM FERROUS CITRATE [Concomitant]
     Active Substance: SODIUM FERROUS CITRATE
     Indication: Anaemia
     Dosage: 50 MG, Q12H
     Route: 048
     Dates: start: 20220719
  12. POLARAMINE [Concomitant]
     Active Substance: DEXCHLORPHENIRAMINE MALEATE
     Indication: Prophylaxis
     Dosage: 5 MG, QW
     Route: 041
     Dates: start: 20220928
  13. DEXAMETHASONE SODIUM PHOSPHATE [Concomitant]
     Active Substance: DEXAMETHASONE SODIUM PHOSPHATE
     Indication: Colon cancer
     Dosage: 6.6 MG, QW
     Route: 041
     Dates: start: 20220928
  14. DEXAMETHASONE SODIUM PHOSPHATE [Concomitant]
     Active Substance: DEXAMETHASONE SODIUM PHOSPHATE
     Indication: Prophylaxis
  15. POTASSIUM GLUCONATE [Concomitant]
     Active Substance: POTASSIUM GLUCONATE
     Indication: Hypokalaemia
     Dosage: 8 MEQ/G, Q8H
     Route: 048
     Dates: start: 20220711

REACTIONS (3)
  - Gastrointestinal infection [Recovered/Resolved]
  - Duodenal ulcer [Recovering/Resolving]
  - Underdose [Unknown]

NARRATIVE: CASE EVENT DATE: 20220928
